FAERS Safety Report 18389238 (Version 11)
Quarter: 2024Q1

REPORT INFORMATION
  Report Type: Report from Study
  Country: NL (occurrence: NL)
  Receive Date: 20201015
  Receipt Date: 20240102
  Transmission Date: 20240409
  Serious: Yes (Hospitalization, Other)
  Sender: FDA-Public Use
  Company Number: NL-GILEAD-2020-0488864

PATIENT
  Age: 66 Year
  Sex: Male
  Weight: 75.7 kg

DRUGS (81)
  1. DEXAMETHASONE [Suspect]
     Active Substance: DEXAMETHASONE
     Indication: Product used for unknown indication
     Route: 042
     Dates: start: 20200922, end: 20200923
  2. DEXAMETHASONE [Suspect]
     Active Substance: DEXAMETHASONE
     Dosage: 10 MG, BID
     Route: 042
     Dates: start: 20200924, end: 20201001
  3. DEXAMETHASONE [Suspect]
     Active Substance: DEXAMETHASONE
     Indication: Product used for unknown indication
     Route: 048
     Dates: start: 20201017, end: 20201019
  4. FLUDARABINE [Suspect]
     Active Substance: FLUDARABINE PHOSPHATE
     Indication: Product used for unknown indication
     Dosage: 30 MG, ONCE (1 TOTAL)
     Route: 042
     Dates: start: 20200910, end: 20200910
  5. FLUDARABINE [Suspect]
     Active Substance: FLUDARABINE PHOSPHATE
     Dosage: 30 MG, ONCE (1 TOTAL)
     Route: 042
     Dates: start: 20200912, end: 20200912
  6. AXICABTAGENE CILOLEUCEL [Suspect]
     Active Substance: AXICABTAGENE CILOLEUCEL
     Indication: Mantle cell lymphoma
     Dosage: INTRAVENOUS KTE-X19
     Route: 042
     Dates: start: 20200915, end: 20200915
  7. MESNA [Suspect]
     Active Substance: MESNA
     Indication: Accidental exposure to product
     Dosage: 400 MG, TID
     Route: 042
     Dates: start: 20200910, end: 20200910
  8. MESNA [Suspect]
     Active Substance: MESNA
     Indication: Product used for unknown indication
     Dosage: 400 MG, TID
     Route: 042
     Dates: start: 20200912, end: 20200912
  9. MESNA [Suspect]
     Active Substance: MESNA
     Dosage: 1600 MG, BID
     Route: 048
     Dates: start: 20201106, end: 20201108
  10. CYCLOPHOSPHAMIDE [Suspect]
     Active Substance: CYCLOPHOSPHAMIDE
     Indication: Product used for unknown indication
     Dosage: 1040 MG, QD
     Route: 042
     Dates: start: 20200911, end: 20200912
  11. CYCLOPHOSPHAMIDE [Suspect]
     Active Substance: CYCLOPHOSPHAMIDE
     Dosage: 300 MG; 6 X 50 (IN TOTAL)
     Route: 048
     Dates: start: 20201106, end: 20201106
  12. DEXAMETHASONE [Suspect]
     Active Substance: DEXAMETHASONE
     Indication: Product used for unknown indication
     Route: 048
     Dates: start: 20200902, end: 20200904
  13. DEXAMETHASONE [Suspect]
     Active Substance: DEXAMETHASONE
     Dosage: 10 MG, QID
     Route: 048
     Dates: start: 20201001, end: 20201008
  14. DEXAMETHASONE [Suspect]
     Active Substance: DEXAMETHASONE
     Route: 048
     Dates: start: 20201009, end: 20201012
  15. DEXAMETHASONE [Suspect]
     Active Substance: DEXAMETHASONE
     Route: 048
     Dates: start: 20201013, end: 20201016
  16. BREXUCABTAGENE AUTOLEUCEL [Suspect]
     Active Substance: BREXUCABTAGENE AUTOLEUCEL
     Indication: Mantle cell lymphoma
     Route: 042
     Dates: start: 20200915, end: 20200915
  17. LACTULOSE [Concomitant]
     Active Substance: LACTULOSE
     Indication: Constipation
     Dosage: 10 G, BID
     Route: 048
     Dates: start: 20200826, end: 20200909
  18. LACTULOSE [Concomitant]
     Active Substance: LACTULOSE
     Dosage: 10 G, BID
     Route: 048
     Dates: start: 20200915, end: 20200917
  19. PLATELETS [Concomitant]
     Active Substance: HUMAN PLATELET, ALLOGENIC
     Indication: Platelet count decreased
     Dosage: UNK
     Dates: start: 20200909, end: 20200909
  20. CLEMASTINE [Concomitant]
     Active Substance: CLEMASTINE
     Indication: Product used for unknown indication
     Dosage: 2 MG, ONCE (1 TOTAL)
     Route: 042
     Dates: start: 20200915, end: 20200915
  21. CARBOPLATIN;CYTARABINE;DEXAMETHASONE;RITUXIMAB [Concomitant]
     Indication: Product used for unknown indication
     Dosage: UNK
     Dates: start: 20200714, end: 20200717
  22. ACETAMINOPHEN [Concomitant]
     Active Substance: ACETAMINOPHEN
     Indication: Product used for unknown indication
     Dosage: 1000 MG, BID
     Route: 048
     Dates: start: 20200801, end: 20200817
  23. ACETAMINOPHEN [Concomitant]
     Active Substance: ACETAMINOPHEN
     Dosage: 1000 MG, ONCE (1 TOTAL)
     Route: 048
     Dates: start: 20200915, end: 20200915
  24. ACETAMINOPHEN [Concomitant]
     Active Substance: ACETAMINOPHEN
     Dosage: 500 MG, Q4HR OR PRN
     Route: 048
     Dates: start: 20200921, end: 20200923
  25. ACETAMINOPHEN [Concomitant]
     Active Substance: ACETAMINOPHEN
     Dosage: 1000 MG, ONCE (1 TOTAL)
     Route: 048
     Dates: start: 20200922, end: 20200922
  26. ACETAMINOPHEN [Concomitant]
     Active Substance: ACETAMINOPHEN
     Dosage: 1000 MG, BID
     Route: 048
     Dates: start: 20201008, end: 20201008
  27. ACETAMINOPHEN [Concomitant]
     Active Substance: ACETAMINOPHEN
     Dosage: 1000 MG, TID
     Route: 042
     Dates: start: 20201009, end: 20201009
  28. ACETAMINOPHEN [Concomitant]
     Active Substance: ACETAMINOPHEN
     Dosage: 1000 MG, QID OR AS NEEDED
     Route: 048
     Dates: start: 20201009, end: 20201011
  29. ACETAMINOPHEN [Concomitant]
     Active Substance: ACETAMINOPHEN
     Dosage: 1000 MG, TID
     Route: 042
     Dates: start: 20201011, end: 20201128
  30. ACETAMINOPHEN [Concomitant]
     Active Substance: ACETAMINOPHEN
     Dosage: 100 MG
     Route: 042
     Dates: start: 20200916, end: 20200917
  31. ACETAMINOPHEN [Concomitant]
     Active Substance: ACETAMINOPHEN
     Dosage: 1000 MG, TID, GASTROENTERAL USE
     Dates: start: 20201011, end: 20201027
  32. ACETAMINOPHEN [Concomitant]
     Active Substance: ACETAMINOPHEN
     Dosage: 1000 MG, TID
     Route: 048
     Dates: start: 20210329, end: 20210329
  33. ACETAMINOPHEN [Concomitant]
     Active Substance: ACETAMINOPHEN
     Dosage: 1000 MG, PRN
     Route: 048
     Dates: start: 20210330
  34. VORICONAZOLE [Concomitant]
     Active Substance: VORICONAZOLE
     Indication: Product used for unknown indication
     Dosage: 338.8 MG, BID
     Route: 042
     Dates: start: 20200811, end: 20200819
  35. VORICONAZOLE [Concomitant]
     Active Substance: VORICONAZOLE
     Dosage: 200 MG, BID
     Route: 042
     Dates: start: 20200819, end: 20200820
  36. VORICONAZOLE [Concomitant]
     Active Substance: VORICONAZOLE
     Dosage: 200 MG, BID
     Route: 048
     Dates: start: 20200825, end: 20200910
  37. VORICONAZOLE [Concomitant]
     Active Substance: VORICONAZOLE
     Dosage: 200 MG, BID
     Route: 048
     Dates: start: 20200909, end: 20201010
  38. VORICONAZOLE [Concomitant]
     Active Substance: VORICONAZOLE
     Dosage: 400 MG, QD
     Route: 048
     Dates: start: 20201120, end: 20201120
  39. VORICONAZOLE [Concomitant]
     Active Substance: VORICONAZOLE
     Dosage: 500 MG, BID
     Route: 048
     Dates: start: 20200909
  40. VORICONAZOLE [Concomitant]
     Active Substance: VORICONAZOLE
     Dosage: 400 MG, QD
     Route: 048
     Dates: start: 20201120, end: 20201121
  41. PSYLLIUM [Concomitant]
     Active Substance: PLANTAGO SEED
     Indication: Constipation
     Dosage: 3.4 G, TID
     Route: 048
     Dates: start: 20200804, end: 20200908
  42. PSYLLIUM [Concomitant]
     Active Substance: PLANTAGO SEED
     Dosage: 3.4 G. AS REQUIRED
     Route: 048
     Dates: start: 20210409
  43. CYTARABINE [Concomitant]
     Active Substance: CYTARABINE
     Indication: Product used for unknown indication
  44. TEMAZEPAM [Concomitant]
     Active Substance: TEMAZEPAM
     Indication: Product used for unknown indication
     Dosage: 10 MG, ONCE (1 TOTAL)
     Route: 048
     Dates: start: 20200914, end: 20200914
  45. TEMAZEPAM [Concomitant]
     Active Substance: TEMAZEPAM
     Dosage: 10 MG, ONCE 1 TOTAL
     Route: 048
     Dates: start: 20200918, end: 20200918
  46. TEMAZEPAM [Concomitant]
     Active Substance: TEMAZEPAM
     Dosage: 10 MG, BID
     Route: 048
     Dates: start: 20200918, end: 20200924
  47. IBRUTINIB [Concomitant]
     Active Substance: IBRUTINIB
     Indication: Product used for unknown indication
     Dosage: 560 MG, QD
     Route: 048
     Dates: start: 20200813, end: 20200818
  48. IBRUTINIB [Concomitant]
     Active Substance: IBRUTINIB
     Dosage: 140 MG, QD
     Route: 048
     Dates: start: 20200819, end: 20200826
  49. IBRUTINIB [Concomitant]
     Active Substance: IBRUTINIB
     Dosage: 140 MG, QD
     Route: 048
     Dates: start: 20200825, end: 20200915
  50. CARBOPLATIN [Concomitant]
     Active Substance: CARBOPLATIN
     Indication: Product used for unknown indication
  51. RITUXIMAB [Concomitant]
     Active Substance: RITUXIMAB
     Indication: Product used for unknown indication
  52. ESOMEPRAZOLE [Concomitant]
     Active Substance: ESOMEPRAZOLE
     Indication: Product used for unknown indication
     Dosage: 40 MG, BID
     Route: 048
     Dates: start: 20200819, end: 20200819
  53. ESOMEPRAZOLE [Concomitant]
     Active Substance: ESOMEPRAZOLE
     Dosage: 40 MG, BID
     Route: 048
     Dates: start: 20200902, end: 20200911
  54. ESOMEPRAZOLE [Concomitant]
     Active Substance: ESOMEPRAZOLE
     Dosage: 40 MG, QD
     Route: 048
     Dates: start: 20200912
  55. ESOMEPRAZOLE [Concomitant]
     Active Substance: ESOMEPRAZOLE
     Dosage: 40 MG, QD
     Route: 048
     Dates: start: 20210330, end: 20210331
  56. FUROSEMIDE [Concomitant]
     Active Substance: FUROSEMIDE
     Indication: Fluid retention
     Dosage: UNK
     Dates: start: 20200910, end: 20200911
  57. FUROSEMIDE [Concomitant]
     Active Substance: FUROSEMIDE
     Dosage: 20 MG, ONCE 1 TOTAL
     Route: 042
     Dates: start: 20200912, end: 20200912
  58. FUROSEMIDE [Concomitant]
     Active Substance: FUROSEMIDE
     Dosage: 20 MG, BID
     Dates: start: 20200920, end: 20200921
  59. FENTANYL [Concomitant]
     Active Substance: FENTANYL\FENTANYL CITRATE
     Indication: Product used for unknown indication
     Dosage: 12 UG Q1HR
     Route: 062
     Dates: start: 20200813, end: 20200817
  60. FENTANYL [Concomitant]
     Active Substance: FENTANYL\FENTANYL CITRATE
     Dosage: 100 UG, ONCE, 1 TOTAL
     Route: 060
     Dates: start: 20201009, end: 20201009
  61. FENTANYL [Concomitant]
     Active Substance: FENTANYL\FENTANYL CITRATE
     Dosage: 100 MG, TID PRN
     Route: 060
     Dates: start: 20201207, end: 20210104
  62. FENTANYL [Concomitant]
     Active Substance: FENTANYL\FENTANYL CITRATE
     Dosage: 100 MG, ONCE PRN
     Route: 060
     Dates: start: 20201022, end: 20201022
  63. VALACYCLOVIR HYDROCHLORIDE [Concomitant]
     Active Substance: VALACYCLOVIR HYDROCHLORIDE
     Indication: Product used for unknown indication
     Dosage: 500 MG, BID
     Route: 048
     Dates: start: 20200825
  64. HYPROMELLOSES [Concomitant]
     Active Substance: HYPROMELLOSES
     Indication: Lacrimation increased
  65. ONDANSETRON [Concomitant]
     Active Substance: ONDANSETRON
     Indication: Vomiting
     Dosage: 8 MG, BID
     Dates: start: 20200910, end: 20200915
  66. ONDANSETRON [Concomitant]
     Active Substance: ONDANSETRON
     Dosage: 8 MG, BID
     Dates: start: 20200917, end: 20200917
  67. RASBURICASE [Concomitant]
     Active Substance: RASBURICASE
     Indication: Product used for unknown indication
     Dosage: 3 MG, QD
     Route: 042
     Dates: start: 20200915, end: 20200916
  68. ANIDULAFUNGIN [Concomitant]
     Active Substance: ANIDULAFUNGIN
     Indication: Product used for unknown indication
     Dosage: 100 MG, QD
     Route: 042
     Dates: start: 20200811, end: 20200908
  69. ANIDULAFUNGIN [Concomitant]
     Active Substance: ANIDULAFUNGIN
     Dosage: 100 MG, QD
     Route: 042
     Dates: start: 20200909, end: 20201010
  70. ANIDULAFUNGIN [Concomitant]
     Active Substance: ANIDULAFUNGIN
     Dosage: 200MG ONCE
     Route: 042
     Dates: start: 20200902, end: 20200902
  71. METOCLOPRAMIDE [Concomitant]
     Active Substance: METOCLOPRAMIDE
     Indication: Vomiting
     Dosage: 10 MG, UNK
     Route: 042
     Dates: start: 20200911, end: 20200911
  72. METOCLOPRAMIDE [Concomitant]
     Active Substance: METOCLOPRAMIDE
     Indication: Nausea
     Dosage: 10 MG, BID OR PRN
     Route: 042
     Dates: start: 20200916, end: 20200924
  73. METOCLOPRAMIDE [Concomitant]
     Active Substance: METOCLOPRAMIDE
     Dosage: 10 MG, BID
     Route: 048
     Dates: start: 20201009, end: 20201010
  74. METOCLOPRAMIDE [Concomitant]
     Active Substance: METOCLOPRAMIDE
     Dosage: 10 MG, PRN (AS REQUIRED)
     Route: 042
     Dates: start: 20201113
  75. METOCLOPRAMIDE [Concomitant]
     Active Substance: METOCLOPRAMIDE
     Dosage: 10 MG, PRN
     Route: 048
     Dates: start: 20210331
  76. METOCLOPRAMIDE [Concomitant]
     Active Substance: METOCLOPRAMIDE
     Dosage: 10 MG, ONCE
     Route: 042
     Dates: start: 20210331, end: 20210331
  77. MOVICOLON [Concomitant]
     Active Substance: POLYETHYLENE GLYCOL 3350\POTASSIUM CHLORIDE\SODIUM BICARBONATE\SODIUM CHLORIDE
     Indication: Product used for unknown indication
     Dosage: 13.8 G, PRN (AS REQUIRED)
     Route: 048
     Dates: start: 20200921
  78. MOVICOLON [Concomitant]
     Active Substance: POLYETHYLENE GLYCOL 3350\POTASSIUM CHLORIDE\SODIUM BICARBONATE\SODIUM CHLORIDE
     Dosage: 13.8 MG, BID
     Route: 048
     Dates: start: 20201009, end: 20201010
  79. SULFAMETHOXAZOLE\TRIMETHOPRIM [Concomitant]
     Active Substance: SULFAMETHOXAZOLE\TRIMETHOPRIM
     Indication: Product used for unknown indication
     Route: 048
     Dates: start: 20200915
  80. SULFAMETHOXAZOLE\TRIMETHOPRIM [Concomitant]
     Active Substance: SULFAMETHOXAZOLE\TRIMETHOPRIM
     Route: 048
     Dates: start: 20210330, end: 20210331
  81. NOREPINEPHRINE [Concomitant]
     Active Substance: NOREPINEPHRINE
     Indication: Product used for unknown indication
     Dosage: 0.2 UG/KG /MIN, CONTINUOUS
     Route: 042
     Dates: start: 20201009, end: 20201010

REACTIONS (31)
  - Balance disorder [Recovered/Resolved]
  - Tremor [Recovered/Resolved]
  - Aphasia [Recovered/Resolved]
  - Neutropenic sepsis [Recovered/Resolved]
  - Cytokine release syndrome [Recovered/Resolved]
  - Haemophagocytic lymphohistiocytosis [Recovered/Resolved]
  - Delirium [Recovered/Resolved]
  - Confusional state [Not Recovered/Not Resolved]
  - Accidental exposure to product [Recovered/Resolved]
  - Delirium [Not Recovered/Not Resolved]
  - Lacrimation increased [Recovered/Resolved]
  - Fall [Recovered/Resolved]
  - C-reactive protein increased [Not Recovered/Not Resolved]
  - C-reactive protein increased [Not Recovered/Not Resolved]
  - Cough [Not Recovered/Not Resolved]
  - Abnormal faeces [Not Recovered/Not Resolved]
  - Vomiting [Recovered/Resolved]
  - Vomiting [Recovered/Resolved]
  - Nausea [Recovered/Resolved]
  - Pyrexia [Recovered/Resolved]
  - Vomiting [Recovered/Resolved]
  - Constipation [Recovered/Resolved]
  - Rhinovirus infection [Not Recovered/Not Resolved]
  - Fluid retention [Not Recovered/Not Resolved]
  - Nausea [Recovered/Resolved]
  - Vomiting [Not Recovered/Not Resolved]
  - Vomiting [Recovered/Resolved]
  - Pyrexia [Recovered/Resolved]
  - Parainfluenzae virus infection [Not Recovered/Not Resolved]
  - Infection [Unknown]
  - Fluid retention [Recovered/Resolved]

NARRATIVE: CASE EVENT DATE: 20200907
